FAERS Safety Report 7712084-3 (Version None)
Quarter: 2011Q3

REPORT INFORMATION
  Report Type: 
  Country: None (occurrence: None)
  Receive Date: 20110823
  Receipt Date: 20110817
  Transmission Date: 20111222
  Serious: Yes (Other)
  Sender: FDA-Public Use
  Company Number: TPA2011A04886

PATIENT
  Age: 79 Year
  Sex: Male
  Weight: 88.4514 kg

DRUGS (14)
  1. ADVAIR HFA [Concomitant]
  2. SERTRALINE HYDROCHLORIDE [Concomitant]
  3. ALEVE [Concomitant]
  4. ASPIRIN [Concomitant]
  5. PRO-AIR (PROCATEROL HYDROCHLORIDE) [Concomitant]
  6. LOSARTAN POTASSIUM [Concomitant]
  7. FISH OIL (FISH OIL) [Concomitant]
  8. CALCIUM CARBONATE [Concomitant]
  9. THYROID TAB [Concomitant]
  10. ACTOS [Suspect]
     Indication: DIABETES MELLITUS
     Dosage: 15 MG, QAM
     Dates: start: 20060301, end: 20110801
  11. SPIRIVA [Concomitant]
  12. SIMVASTATIN [Concomitant]
  13. LEVOTHYROXINE SODIUM [Concomitant]
  14. ALPRAZOLAM [Concomitant]

REACTIONS (5)
  - NEPHROLITHIASIS [None]
  - BLADDER TRANSITIONAL CELL CARCINOMA STAGE II [None]
  - RENAL CYST [None]
  - CHOLELITHIASIS [None]
  - AORTIC ANEURYSM [None]
